FAERS Safety Report 8400404 (Version 4)
Quarter: 2012Q4

REPORT INFORMATION
  Report Type: Spontaneous
  Country: US (occurrence: None)
  Receive Date: 20120131
  Receipt Date: 20120816
  Transmission Date: 20130627
  Serious: Yes (Life-Threatening, Hospitalization, Other)
  Sender: FDA-Public Use
  Company Number: ADR-2012-00179

PATIENT
  Sex: Female

DRUGS (2)
  1. LIORESAL [Suspect]
     Indication: MUSCLE SPASTICITY
     Dosage: 236 MCG/DAY
  2. LIORESAL [Suspect]
     Indication: CEREBROVASCULAR ACCIDENT
     Dosage: 236 MCG/DAY

REACTIONS (12)
  - DRUG WITHDRAWAL SYNDROME [None]
  - HYPERTONIA [None]
  - NASOPHARYNGITIS [None]
  - DEVICE DISLOCATION [None]
  - DEVICE DAMAGE [None]
  - MUSCLE SPASTICITY [None]
  - POOR QUALITY SLEEP [None]
  - URINARY RETENTION [None]
  - FALL [None]
  - DEVICE KINK [None]
  - DEVICE CONNECTION ISSUE [None]
  - DEVICE LEAKAGE [None]
